FAERS Safety Report 10564105 (Version 1)
Quarter: 2014Q4

REPORT INFORMATION
  Report Type: Spontaneous
  Country: US (occurrence: US)
  Receive Date: 20141104
  Receipt Date: 20141104
  Transmission Date: 20150529
  Serious: Yes (Other)
  Sender: FDA-Public Use
  Company Number: US-TEVA-518393USA

PATIENT
  Age: 72 Year
  Sex: Female
  Weight: 62.65 kg

DRUGS (5)
  1. LEVALBUTEROL [Concomitant]
     Active Substance: LEVALBUTEROL
  2. TOBRAMYCIN. [Suspect]
     Active Substance: TOBRAMYCIN
     Indication: BRONCHIECTASIS
     Dosage: 300 MG/5 ML
     Route: 055
     Dates: start: 20140922, end: 20141001
  3. EXFORGE [Concomitant]
     Active Substance: AMLODIPINE BESYLATE\VALSARTAN
  4. CRESTOR [Concomitant]
     Active Substance: ROSUVASTATIN CALCIUM
  5. PULMICORT TURBUHALER [Suspect]
     Active Substance: BUDESONIDE

REACTIONS (3)
  - Laryngeal oedema [Unknown]
  - Dysphonia [Unknown]
  - Vocal cord disorder [Unknown]

NARRATIVE: CASE EVENT DATE: 20141023
